FAERS Safety Report 4914863-4 (Version None)
Quarter: 2006Q1

REPORT INFORMATION
  Report Type: 
  Country: None (occurrence: None)
  Receive Date: 20060217
  Receipt Date: 20060208
  Transmission Date: 20060701
  Serious: Yes (Hospitalization)
  Sender: FDA-Public Use
  Company Number: GB-JNJFOC-20060202164

PATIENT
  Age: 82 Year
  Sex: Female

DRUGS (11)
  1. DURAGESIC-50 [Suspect]
     Indication: DRUG USE FOR UNKNOWN INDICATION
     Route: 062
  2. ASPIRIN [Concomitant]
     Route: 048
  3. FUROSEMIDE [Concomitant]
     Route: 048
  4. OMEPRAZOLE [Concomitant]
     Route: 048
  5. PREDNISOLONE [Concomitant]
     Route: 048
  6. AMYTRIPTYLINE [Concomitant]
     Route: 048
  7. ALENDRONIC ACID [Concomitant]
     Route: 065
  8. CALCICHEW D3 [Concomitant]
     Route: 065
  9. FERROUS SULFATE TAB [Concomitant]
     Route: 065
  10. HUMAN MIXTARD [Concomitant]
     Route: 065
  11. HUMAN MIXTARD [Concomitant]
     Dosage: 480 MORNING AND 160 NIGHT
     Route: 065

REACTIONS (2)
  - DYSKINESIA [None]
  - MYOCLONUS [None]
